FAERS Safety Report 17059963 (Version 1)
Quarter: 2019Q4

REPORT INFORMATION
  Report Type: Spontaneous
  Country: US (occurrence: US)
  Receive Date: 20191121
  Receipt Date: 20191121
  Transmission Date: 20200122
  Serious: No
  Sender: FDA-Public Use
  Company Number: US-NOVOPROD-672447

PATIENT
  Age: 74 Year
  Sex: Female

DRUGS (1)
  1. NOVOLOG [Suspect]
     Active Substance: INSULIN ASPART
     Indication: TYPE 1 DIABETES MELLITUS
     Dosage: 13 IU, QD (4 UNITS BREAKFAST, 4 UNITS LUNCH, 5 UNITS DINNER)
     Route: 058
     Dates: start: 2011

REACTIONS (3)
  - Contusion [Recovering/Resolving]
  - Arthritis [Unknown]
  - Device malfunction [Unknown]

NARRATIVE: CASE EVENT DATE: 20190629
